FAERS Safety Report 4433203-0 (Version None)
Quarter: 2004Q3

REPORT INFORMATION
  Report Type: 
  Country: None (occurrence: None)
  Receive Date: 20040823
  Receipt Date: 20040811
  Transmission Date: 20050211
  Serious: Yes (Hospitalization, Other)
  Sender: FDA-Public Use
  Company Number: HQWYE191711AUG04

PATIENT
  Age: 43 Year
  Sex: Male

DRUGS (12)
  1. AVLOCARDYL LP (PROPRANOLOL HYDROCHLORIDE, ER) [Suspect]
     Indication: HYPERTENSION
     Dosage: 160 MG 1X PER 1 DAY
     Route: 048
  2. COMBIVIR [Suspect]
     Indication: HIV INFECTION
     Dosage: 2DF DAILY
     Route: 048
     Dates: start: 19970915
  3. CRIXIVAN [Suspect]
     Indication: HIV INFECTION
     Dosage: 2 DF DAILY
     Route: 048
     Dates: start: 19991115
  4. GEMFIBROZIL [Suspect]
     Indication: HYPERLIPIDAEMIA
     Dosage: 450 MG 1X PER 1 DAY
     Route: 048
  5. NORVIR [Suspect]
     Indication: HIV INFECTION
     Dosage: 4 DF DAILY
     Route: 048
     Dates: start: 19991115
  6. VIRAMUNE [Suspect]
     Indication: HIV INFECTION
     Dosage: 2 DF DAILY
     Route: 048
     Dates: start: 20020626
  7. ZOVIRAX [Suspect]
     Indication: HIV INFECTION
  8. PULMICORT [Concomitant]
  9. BRICANYL [Concomitant]
  10. DOLIPRANE (PARACETAMOL) [Concomitant]
  11. LOPERAMIDE HCL [Concomitant]
  12. IMOVANE (ZOPICLONE) [Concomitant]

REACTIONS (1)
  - ANGINA UNSTABLE [None]
